FAERS Safety Report 13196562 (Version 5)
Quarter: 2017Q1

REPORT INFORMATION
  Report Type: Spontaneous
  Country: US (occurrence: US)
  Receive Date: 20170208
  Receipt Date: 20170323
  Transmission Date: 20170428
  Serious: No
  Sender: FDA-Public Use
  Company Number: US-009507513-1701USA011608

PATIENT
  Age: 17 Year
  Sex: Female
  Weight: 73.47 kg

DRUGS (1)
  1. NEXPLANON [Suspect]
     Active Substance: ETONOGESTREL
     Dosage: 1 DF, UNK
     Route: 059
     Dates: start: 20150909

REACTIONS (2)
  - Complication associated with device [Recovered/Resolved]
  - Complication of device removal [Unknown]

NARRATIVE: CASE EVENT DATE: 20170118
